FAERS Safety Report 5934342-5 (Version None)
Quarter: 2008Q4

REPORT INFORMATION
  Report Type: 
  Country: None (occurrence: None)
  Receive Date: 20081029
  Receipt Date: 20081021
  Transmission Date: 20090506
  Serious: Yes (Other)
  Sender: FDA-Public Use
  Company Number: PHHY2008BR25556

PATIENT
  Sex: Female
  Weight: 85 kg

DRUGS (2)
  1. DIOVAN [Suspect]
     Indication: HYPERTENSION
     Dosage: 160/25 MG, 1 TABLET/DAY
     Route: 048
     Dates: start: 20080201
  2. DIOVAN [Suspect]
     Dosage: 80/12.5 MG 1 TABLET/DAY
     Route: 048

REACTIONS (2)
  - HYPOTENSION [None]
  - VISUAL IMPAIRMENT [None]
